APPROVED DRUG PRODUCT: ZAFIRLUKAST
Active Ingredient: ZAFIRLUKAST
Strength: 20MG
Dosage Form/Route: TABLET;ORAL
Application: A090372 | Product #002 | TE Code: AB
Applicant: DR REDDYS LABORATORIES LTD
Approved: Nov 18, 2010 | RLD: No | RS: No | Type: RX